FAERS Safety Report 5818383-4 (Version None)
Quarter: 2008Q3

REPORT INFORMATION
  Report Type: 
  Country: None (occurrence: None)
  Receive Date: 20080722
  Receipt Date: 20080715
  Transmission Date: 20090109
  Serious: Yes (Disabling, Other)
  Sender: FDA-Public Use
  Company Number: US-BAXTER-2008BH007393

PATIENT
  Age: 75 Year
  Sex: Female

DRUGS (9)
  1. HEPARIN SODIUM INJECTION [Suspect]
     Indication: CATHETERISATION CARDIAC
     Route: 040
     Dates: start: 20050321, end: 20050321
  2. HEPARIN SODIUM INJECTION [Suspect]
     Indication: VASCULAR GRAFT
     Route: 040
     Dates: start: 20050321, end: 20050321
  3. HEPARIN SODIUM INJECTION [Suspect]
     Indication: THROMBOSIS PROPHYLAXIS
     Route: 040
     Dates: start: 20050321, end: 20050321
  4. HEPARIN SODIUM INJECTION [Suspect]
     Route: 042
     Dates: start: 20050331, end: 20050331
  5. HEPARIN SODIUM INJECTION [Suspect]
     Route: 042
     Dates: start: 20050331, end: 20050331
  6. HEPARIN SODIUM INJECTION [Suspect]
     Route: 042
     Dates: start: 20050331, end: 20050331
  7. HEPARIN SODIUM INJECTION [Suspect]
     Dosage: DOSE UNIT:UNKNOWN
     Route: 010
     Dates: start: 20050401, end: 20050401
  8. HEPARIN SODIUM INJECTION [Suspect]
     Dosage: DOSE UNIT:UNKNOWN
     Route: 010
     Dates: start: 20050401, end: 20050401
  9. HEPARIN SODIUM INJECTION [Suspect]
     Dosage: DOSE UNIT:UNKNOWN
     Route: 010
     Dates: start: 20050401, end: 20050401

REACTIONS (14)
  - CARDIAC ARREST [None]
  - CONTINUOUS HAEMODIAFILTRATION [None]
  - CYANOSIS [None]
  - DISSEMINATED INTRAVASCULAR COAGULATION [None]
  - FINGER AMPUTATION [None]
  - FOOT AMPUTATION [None]
  - GANGRENE [None]
  - HEPARIN-INDUCED THROMBOCYTOPENIA [None]
  - HYPOTENSION [None]
  - JUGULAR VEIN THROMBOSIS [None]
  - PERIPHERAL ISCHAEMIA [None]
  - POST PROCEDURAL HAEMORRHAGE [None]
  - RENAL IMPAIRMENT [None]
  - SEPSIS [None]
